FAERS Safety Report 13923060 (Version 2)
Quarter: 2017Q3

REPORT INFORMATION
  Report Type: Report from Study
  Country: None (occurrence: US)
  Receive Date: 20170831
  Receipt Date: 20170919
  Transmission Date: 20171127
  Serious: Yes (Other)
  Sender: FDA-Public Use
  Company Number: US-ABBVIE-17K-163-2032909-00

PATIENT
  Sex: Female

DRUGS (1)
  1. HUMIRA [Suspect]
     Active Substance: ADALIMUMAB
     Indication: EXPOSURE VIA BODY FLUID
     Route: 050

REACTIONS (5)
  - Exposure during pregnancy [Unknown]
  - Premature separation of placenta [Recovered/Resolved]
  - Paternal drugs affecting foetus [Unknown]
  - Progesterone decreased [Unknown]
  - Normal newborn [Unknown]
